FAERS Safety Report 16257710 (Version 1)
Quarter: 2019Q2

REPORT INFORMATION
  Report Type: Report from Study
  Country: IT (occurrence: IT)
  Receive Date: 20190430
  Receipt Date: 20190430
  Transmission Date: 20190711
  Serious: Yes (Other)
  Sender: FDA-Public Use
  Company Number: IT-TEVA-2019-IT-1044920

PATIENT
  Age: 9 Year
  Sex: Male
  Weight: 37 kg

DRUGS (19)
  1. ENAPREN [Concomitant]
     Active Substance: ENALAPRIL MALEATE
     Dosage: 2.5 MILLIGRAM DAILY;
     Route: 048
     Dates: start: 20180803, end: 20180903
  2. DAUNOBLASTINA [Suspect]
     Active Substance: DAUNORUBICIN
     Indication: ACUTE LYMPHOCYTIC LEUKAEMIA
     Route: 042
     Dates: start: 20180727, end: 20180830
  3. DEURSIL [Concomitant]
     Active Substance: URSODIOL
     Dosage: 600 MILLIGRAM DAILY;
     Route: 048
     Dates: start: 20180808
  4. DIFLUCAN [Concomitant]
     Active Substance: FLUCONAZOLE
     Dosage: 200 MILLIGRAM DAILY;
     Route: 048
     Dates: start: 20180808, end: 20180821
  5. DELTACORTENE [Concomitant]
     Active Substance: PREDNISONE
     Dosage: 70 MILLIGRAM DAILY;
     Route: 048
     Dates: start: 20180727
  6. MYCOSTATIN [Concomitant]
     Active Substance: NYSTATIN
     Dosage: 15 ML DAILY;
     Route: 048
     Dates: start: 20180720
  7. PAXABEL [Concomitant]
     Dosage: 1 DOSAGE FORMS DAILY;
     Route: 048
     Dates: start: 20180803, end: 20180810
  8. DILATREND [Concomitant]
     Active Substance: CARVEDILOL
     Dosage: 1.56 MILLIGRAM DAILY;
     Route: 048
     Dates: start: 20180809
  9. METHOTREXATE. [Suspect]
     Active Substance: METHOTREXATE
     Indication: ACUTE LYMPHOCYTIC LEUKAEMIA
     Route: 037
     Dates: start: 20180723, end: 20181015
  10. VINCRISTINE [Suspect]
     Active Substance: VINCRISTINE
     Indication: ACUTE LYMPHOCYTIC LEUKAEMIA
     Route: 042
     Dates: start: 20180727, end: 20180830
  11. ZOFRAN [Concomitant]
     Active Substance: ONDANSETRON HYDROCHLORIDE
     Dosage: 6 MILLIGRAM DAILY;
     Route: 042
     Dates: start: 20180723, end: 20180813
  12. BACTRIM [Concomitant]
     Active Substance: SULFAMETHOXAZOLE\TRIMETHOPRIM
     Route: 048
     Dates: start: 20180720
  13. PRIVIGEN [Concomitant]
     Active Substance: HUMAN IMMUNOGLOBULIN G
     Dosage: 15 GRAM DAILY;
     Route: 042
     Dates: start: 20180811, end: 20180812
  14. LASIX [Concomitant]
     Active Substance: FUROSEMIDE
     Dosage: 12.5 MILLIGRAM DAILY;
     Route: 048
     Dates: start: 20180803
  15. PEGASPARGASE [Suspect]
     Active Substance: PEGASPARGASE
     Indication: ACUTE LYMPHOCYTIC LEUKAEMIA
     Route: 042
     Dates: start: 20180802, end: 20180827
  16. AMIKACIN SULFATE. [Concomitant]
     Active Substance: AMIKACIN SULFATE
     Indication: AEROMONAS INFECTION
     Dosage: 700 MILLIGRAM DAILY;
     Route: 042
     Dates: start: 20180812, end: 20180818
  17. PERFALGAN [Concomitant]
     Active Substance: ACETAMINOPHEN
     Indication: PYREXIA
     Dosage: 560 MILLIGRAM DAILY;
     Route: 042
  18. GLAZIDIM [Concomitant]
     Active Substance: CEFTAZIDIME
     Indication: AEROMONAS INFECTION
     Dosage: 3600 MILLIGRAM DAILY;
     Route: 042
     Dates: start: 20180812, end: 20180818
  19. ANTRA [Concomitant]
     Active Substance: OMEPRAZOLE
     Dosage: 20 MILLIGRAM DAILY;
     Route: 042
     Dates: start: 20180721

REACTIONS (2)
  - Hyperbilirubinaemia [Recovered/Resolved]
  - Ocular icterus [Recovered/Resolved]

NARRATIVE: CASE EVENT DATE: 20180814
